FAERS Safety Report 7476626-8 (Version None)
Quarter: 2011Q2

REPORT INFORMATION
  Report Type: 
  Country: None (occurrence: None)
  Receive Date: 20110512
  Receipt Date: 20110503
  Transmission Date: 20111010
  Serious: Yes (Disabling, Other)
  Sender: FDA-Public Use
  Company Number: US-ASTRAZENECA-2011SE26063

PATIENT
  Age: 70 Year
  Sex: Female

DRUGS (1)
  1. NEXIUM [Suspect]
     Route: 048

REACTIONS (3)
  - CARPAL TUNNEL SYNDROME [None]
  - SLOW RESPONSE TO STIMULI [None]
  - PARAPLEGIA [None]
